FAERS Safety Report 17185446 (Version 1)
Quarter: 2019Q4

REPORT INFORMATION
  Report Type: Spontaneous
  Country: US (occurrence: US)
  Receive Date: 20191220
  Receipt Date: 20191220
  Transmission Date: 20200122
  Serious: No
  Sender: FDA-Public Use
  Company Number: US-MALLINCKRODT-T201806777

PATIENT
  Sex: Female

DRUGS (2)
  1. FENTANYL TRANSDERMAL SYSTEM [Suspect]
     Active Substance: FENTANYL
     Indication: BACK PAIN
     Dosage: 75 MCG/HOUR
     Route: 062
     Dates: start: 2018
  2. MORPHINE [Concomitant]
     Active Substance: MORPHINE
     Indication: BACK PAIN
     Dosage: 15 MG, PRN
     Route: 065
     Dates: start: 2018

REACTIONS (4)
  - Anxiety [Unknown]
  - Therapeutic product effect decreased [Unknown]
  - Application site pruritus [Unknown]
  - Feeling jittery [Unknown]
